FAERS Safety Report 10459228 (Version 2)
Quarter: 2014Q3

REPORT INFORMATION
  Report Type: Spontaneous
  Country: US (occurrence: None)
  Receive Date: 20140915
  Receipt Date: 20140926
  Transmission Date: 20150326
  Serious: Yes (Hospitalization)
  Sender: FDA-Public Use
  Company Number: 2014-US-011426

PATIENT
  Age: 44 Year
  Sex: Female

DRUGS (2)
  1. XYREM [Suspect]
     Active Substance: SODIUM OXYBATE
     Indication: NARCOLEPSY
     Route: 048
     Dates: start: 200406
  2. XYREM [Suspect]
     Active Substance: SODIUM OXYBATE
     Indication: CATAPLEXY
     Route: 048
     Dates: start: 200406

REACTIONS (6)
  - Impaired healing [None]
  - Insomnia [None]
  - Road traffic accident [None]
  - Spinal fusion surgery [None]
  - Therapy cessation [None]
  - Intervertebral disc protrusion [None]

NARRATIVE: CASE EVENT DATE: 20140903
